FAERS Safety Report 25875690 (Version 1)
Quarter: 2025Q4

REPORT INFORMATION
  Report Type: Other
  Country: JP (occurrence: JP)
  Receive Date: 20251003
  Receipt Date: 20251003
  Transmission Date: 20260118
  Serious: Yes (Death, Hospitalization)
  Sender: NOVITIUM PHARMA
  Company Number: JP-NOVITIUM PHARMA-000015

PATIENT
  Age: 68 Year
  Sex: Male

DRUGS (4)
  1. IMATINIB [Suspect]
     Active Substance: IMATINIB
     Indication: Gastrointestinal stromal tumour
     Dates: start: 201209
  2. SUNITINIB [Concomitant]
     Active Substance: SUNITINIB
     Indication: Gastrointestinal stromal tumour
  3. REGORAFENIB [Concomitant]
     Active Substance: REGORAFENIB
     Indication: Gastrointestinal stromal tumour
  4. INSULIN NOS [Concomitant]
     Active Substance: INSULIN NOS
     Indication: Gastrointestinal stromal tumour

REACTIONS (1)
  - Hypoglycaemia [Fatal]
